FAERS Safety Report 9757696 (Version 2)
Quarter: 2015Q4

REPORT INFORMATION
  Report Type: Spontaneous
  Country: US (occurrence: US)
  Receive Date: 20131216
  Receipt Date: 20151120
  Transmission Date: 20160305
  Serious: Yes (Hospitalization, Other)
  Sender: FDA-Public Use
  Company Number: US-BIOGENIDEC-2013BI118594

PATIENT
  Age: 71 Year
  Sex: Female

DRUGS (1)
  1. TYSABRI [Suspect]
     Active Substance: NATALIZUMAB
     Indication: MULTIPLE SCLEROSIS
     Route: 042
     Dates: start: 20090316

REACTIONS (6)
  - Hepatic cirrhosis [Not Recovered/Not Resolved]
  - Urinary tract infection [Not Recovered/Not Resolved]
  - Hearing impaired [Not Recovered/Not Resolved]
  - Abscess sterile [Recovered/Resolved]
  - Breast cancer stage I [Not Recovered/Not Resolved]
  - Gastric varices [Not Recovered/Not Resolved]

NARRATIVE: CASE EVENT DATE: 2013
